FAERS Safety Report 10174006 (Version 1)
Quarter: 2014Q2

REPORT INFORMATION
  Report Type: Spontaneous
  Country: US (occurrence: None)
  Receive Date: 20140514
  Receipt Date: 20140514
  Transmission Date: 20141212
  Serious: Yes (Life-Threatening, Hospitalization)
  Sender: FDA-Public Use
  Company Number: None

PATIENT
  Age: 76 Year
  Sex: Male

DRUGS (12)
  1. PROPOFOL [Suspect]
     Indication: SEDATIVE THERAPY
     Route: 042
     Dates: start: 20140329, end: 20140329
  2. ATORVASTATIN [Concomitant]
  3. CHOLECALCIFEROL [Concomitant]
  4. DOXAZOSIN [Concomitant]
  5. EZETIMIBE [Concomitant]
  6. INSULIN ASPART [Concomitant]
  7. LANSOPRAZOLE [Concomitant]
  8. METOPROLOL SUCCINATA [Concomitant]
  9. MULTIVITAMIN [Concomitant]
  10. PREDNISONE [Concomitant]
  11. TACROLIMUS [Concomitant]
  12. VALSARTAN [Concomitant]

REACTIONS (1)
  - Pulse absent [None]
